FAERS Safety Report 7121841-6 (Version None)
Quarter: 2010Q4

REPORT INFORMATION
  Report Type: 
  Country: None (occurrence: None)
  Receive Date: 20101124
  Receipt Date: 20101118
  Transmission Date: 20110411
  Serious: Yes (Hospitalization)
  Sender: FDA-Public Use
  Company Number: AR-ROCHE-738851

PATIENT
  Age: 28 Year
  Sex: Female

DRUGS (5)
  1. ACTEMRA [Suspect]
     Dosage: FREQUENCY REPORTED AS MONTHLY
     Route: 042
     Dates: start: 20100301, end: 20100901
  2. METHOTREXATE [Concomitant]
     Dosage: DRUG REPORTED AS METROTEXATE
  3. FOLIC ACID [Concomitant]
  4. SERETIDE [Concomitant]
  5. MELOXICAM [Concomitant]

REACTIONS (1)
  - PANCREATITIS [None]
